FAERS Safety Report 18245228 (Version 2)
Quarter: 2020Q4

REPORT INFORMATION
  Report Type: Report from Study
  Country: None (occurrence: CA)
  Receive Date: 20200909
  Receipt Date: 20201119
  Transmission Date: 20210113
  Serious: Yes (Other)
  Sender: FDA-Public Use
  Company Number: CA-ABBVIE-20K-028-3556322-00

PATIENT
  Sex: Female
  Weight: 26 kg

DRUGS (1)
  1. HUMIRA [Suspect]
     Active Substance: ADALIMUMAB
     Indication: UVEITIS
     Route: 058
     Dates: start: 20200514

REACTIONS (1)
  - Deposit eye [Recovered/Resolved]

NARRATIVE: CASE EVENT DATE: 2020
